FAERS Safety Report 24905795 (Version 1)
Quarter: 2025Q1

REPORT INFORMATION
  Report Type: Spontaneous
  Country: US (occurrence: None)
  Receive Date: 20250130
  Receipt Date: 20250130
  Transmission Date: 20250409
  Serious: Yes (unspecified)
  Sender: FDA-CTU
  Company Number: None

PATIENT
  Age: 14 Year
  Sex: Female
  Weight: 46.35 kg

DRUGS (4)
  1. OSELTAMIVIR [Suspect]
     Active Substance: OSELTAMIVIR
     Indication: Influenza
     Dosage: OTHER QUANTITY : 1 TABLET(S);?FREQUENCY : TWICE A DAY;?
     Route: 048
     Dates: start: 20250129, end: 20250130
  2. VICKS NYQUIL [Concomitant]
     Active Substance: ACETAMINOPHEN\DEXTROMETHORPHAN HYDROBROMIDE\DOXYLAMINE SUCCINATE
  3. ADVIL [Concomitant]
     Active Substance: IBUPROFEN
  4. VICKS DAYQUIL [Concomitant]
     Active Substance: DEXTROMETHORPHAN HYDROBROMIDE\GUAIFENESIN

REACTIONS (9)
  - Inappropriate affect [None]
  - Abnormal behaviour [None]
  - Chills [None]
  - Hallucinations, mixed [None]
  - Hyperhidrosis [None]
  - Screaming [None]
  - Face injury [None]
  - Nightmare [None]
  - Vomiting [None]

NARRATIVE: CASE EVENT DATE: 20250130
